FAERS Safety Report 11004216 (Version 1)
Quarter: 2015Q2

REPORT INFORMATION
  Report Type: Spontaneous
  Country: CN (occurrence: None)
  Receive Date: 20150407
  Receipt Date: 20150407
  Transmission Date: 20150821
  Serious: Yes (Hospitalization)
  Sender: FDA-Public Use
  Company Number: 2015AMD00051

PATIENT
  Age: 32 Month
  Sex: Male

DRUGS (1)
  1. ZENTEL (ALBENDAZOLE) TABLET [Suspect]
     Active Substance: ALBENDAZOLE
     Indication: HELMINTHIC INFECTION
     Dosage: 2 DOSAGE UNITS, 1X/DAY, ORAL
     Route: 048
     Dates: start: 20131112, end: 20131112

REACTIONS (3)
  - Vomiting [None]
  - Diarrhoea [None]
  - Pyrexia [None]

NARRATIVE: CASE EVENT DATE: 20131112
